FAERS Safety Report 6170958-1 (Version None)
Quarter: 2009Q2

REPORT INFORMATION
  Report Type: 
  Country: None (occurrence: None)
  Receive Date: 20090427
  Receipt Date: 20090427
  Transmission Date: 20091009
  Serious: Yes (Hospitalization)
  Sender: FDA-Public Use
  Company Number: None

PATIENT
  Age: 18 Year
  Sex: Male
  Weight: 100 kg

DRUGS (1)
  1. ACETAMINOPHEN [Suspect]
     Indication: SELF-MEDICATION
     Dosage: 20,000 MG PO X1
     Route: 048
     Dates: start: 20081207

REACTIONS (2)
  - ALCOHOL USE [None]
  - INCORRECT DOSE ADMINISTERED [None]
